FAERS Safety Report 16344952 (Version 1)
Quarter: 2019Q2

REPORT INFORMATION
  Report Type: Report from Study
  Country: None (occurrence: US)
  Receive Date: 20190522
  Receipt Date: 20190522
  Transmission Date: 20190711
  Serious: Yes (Death)
  Sender: FDA-Public Use
  Company Number: US-ABBVIE-18K-163-2584401-00

PATIENT
  Age: 18 Year
  Sex: Female

DRUGS (1)
  1. HUMIRA [Suspect]
     Active Substance: ADALIMUMAB
     Indication: CROHN^S DISEASE
     Route: 058

REACTIONS (4)
  - Immunodeficiency [Not Recovered/Not Resolved]
  - Acute respiratory distress syndrome [Fatal]
  - Organ failure [Fatal]
  - Adenovirus infection [Fatal]

NARRATIVE: CASE EVENT DATE: 201811
